FAERS Safety Report 8577348-2 (Version None)
Quarter: 2012Q3

REPORT INFORMATION
  Report Type: 
  Country: None (occurrence: None)
  Receive Date: 20120807
  Receipt Date: 20120627
  Transmission Date: 20120928
  Serious: Yes (Life-Threatening, Other)
  Sender: FDA-Public Use
  Company Number: CHPA2012US014687

PATIENT
  Sex: Female

DRUGS (2)
  1. NICOTINE [Suspect]
     Indication: SMOKING CESSATION THERAPY
     Dosage: 21 MG A DAY
     Route: 062
     Dates: start: 20110101
  2. VITAMINS NOS [Concomitant]

REACTIONS (14)
  - WEIGHT DECREASED [None]
  - DYSPNOEA [None]
  - DIARRHOEA [None]
  - VOMITING [None]
  - TREATMENT NONCOMPLIANCE [None]
  - DIZZINESS [None]
  - OVERDOSE [None]
  - RASH [None]
  - FEELING ABNORMAL [None]
  - ANXIETY [None]
  - GAIT DISTURBANCE [None]
  - IRRITABILITY [None]
  - WEIGHT INCREASED [None]
  - ARTHRITIS [None]
